FAERS Safety Report 15949999 (Version 1)
Quarter: 2019Q1

REPORT INFORMATION
  Report Type: Report from Study
  Country: US (occurrence: US)
  Receive Date: 20190211
  Receipt Date: 20190211
  Transmission Date: 20190417
  Serious: Yes (Hospitalization, Other)
  Sender: FDA-Public Use
  Company Number: US-TAKEDA-2019TUS004505

PATIENT
  Age: 82 Year
  Sex: Male
  Weight: 84.81 kg

DRUGS (1)
  1. BORTEZOMIB. [Suspect]
     Active Substance: BORTEZOMIB
     Indication: PLASMA CELL MYELOMA
     Dosage: UNK
     Route: 058
     Dates: start: 20111010

REACTIONS (4)
  - Plasma cell myeloma [Unknown]
  - Nausea [Unknown]
  - Pneumonia [Unknown]
  - Diarrhoea [Unknown]

NARRATIVE: CASE EVENT DATE: 201805
